APPROVED DRUG PRODUCT: OMEGA-3-ACID ETHYL ESTERS
Active Ingredient: OMEGA-3-ACID ETHYL ESTERS
Strength: 1GM CONTAINS AT LEAST 900MG OF THE ETHYL ESTERS OF OMEGA-3 FATTY ACIDS
Dosage Form/Route: CAPSULE;ORAL
Application: A203893 | Product #001 | TE Code: AB
Applicant: ONESOURCE SPECIALTY PTE LTD
Approved: Sep 19, 2017 | RLD: No | RS: No | Type: RX